FAERS Safety Report 6269381-0 (Version None)
Quarter: 2009Q3

REPORT INFORMATION
  Report Type: 
  Country: None (occurrence: None)
  Receive Date: 20090713
  Receipt Date: 20090629
  Transmission Date: 20100115
  Serious: Yes (Hospitalization, Disabling)
  Sender: FDA-Public Use
  Company Number: 09-000991

PATIENT
  Age: 66 Year
  Sex: Female

DRUGS (2)
  1. DOVONEX [Suspect]
     Indication: PSORIASIS
     Dosage: 3 G, QD, TOPICAL
     Route: 061
     Dates: start: 20081201, end: 20090515
  2. BETAMETHASONE    (BETAMETHASONE) OINTMENT [Concomitant]

REACTIONS (4)
  - CONDITION AGGRAVATED [None]
  - DERMATITIS CONTACT [None]
  - HYPERSENSITIVITY [None]
  - PSORIASIS [None]
